FAERS Safety Report 4432543-9 (Version None)
Quarter: 2004Q3

REPORT INFORMATION
  Report Type: 
  Country: None (occurrence: None)
  Receive Date: 20040820
  Receipt Date: 20040809
  Transmission Date: 20050211
  Serious: No
  Sender: FDA-Public Use
  Company Number: USA-2004-0016353

PATIENT
  Age: 45 Year
  Sex: Female

DRUGS (7)
  1. OXYCONTIN [Suspect]
     Indication: PAIN
     Dosage: 40 MG, Q8H
  2. PREDNISONE [Concomitant]
  3. IMURAN [Concomitant]
  4. ALLEGRA [Concomitant]
  5. PROTONIX [Concomitant]
  6. ESTRADIOL [Concomitant]
  7. VICODIN [Concomitant]

REACTIONS (3)
  - CHOLECYSTECTOMY [None]
  - DIARRHOEA [None]
  - DRUG INEFFECTIVE [None]
